FAERS Safety Report 15207325 (Version 1)
Quarter: 2018Q3

REPORT INFORMATION
  Report Type: Spontaneous
  Country: US (occurrence: US)
  Receive Date: 20180727
  Receipt Date: 20180727
  Transmission Date: 20181010
  Serious: Yes (Death, Hospitalization, Other)
  Sender: FDA-Public Use
  Company Number: US-PFIZER INC-2018296321

PATIENT
  Age: 56 Year
  Sex: Female
  Weight: 75 kg

DRUGS (12)
  1. ATORVASTATIN CALCIUM. [Suspect]
     Active Substance: ATORVASTATIN CALCIUM
     Indication: ILL-DEFINED DISORDER
     Dosage: UNK
     Route: 065
     Dates: end: 20041111
  2. CELECOXIB. [Suspect]
     Active Substance: CELECOXIB
     Indication: OSTEOARTHRITIS
     Dosage: UNK
     Route: 048
  3. ACETYLSALICYLIC ACID [Suspect]
     Active Substance: ASPIRIN
     Indication: ILL-DEFINED DISORDER
     Dosage: UNK
     Route: 065
     Dates: end: 20041111
  4. ESOMEPRAZOLE MAGNESIUM. [Concomitant]
     Active Substance: ESOMEPRAZOLE MAGNESIUM
     Dosage: UNK
     Route: 065
  5. POTASSIUM CHLORIDE. [Concomitant]
     Active Substance: POTASSIUM CHLORIDE
     Dosage: UNK
     Route: 065
  6. DOCUSATE SODIUM. [Concomitant]
     Active Substance: DOCUSATE SODIUM
     Dosage: UNK
     Route: 065
  7. VITAMIN D [Suspect]
     Active Substance: CHOLECALCIFEROL
     Indication: ILL-DEFINED DISORDER
     Dosage: UNK
     Route: 065
  8. CALCIUM [Concomitant]
     Active Substance: CALCIUM
     Dosage: UNK
     Route: 065
  9. ALENDRONATE SODIUM. [Suspect]
     Active Substance: ALENDRONATE SODIUM
     Indication: ILL-DEFINED DISORDER
     Dosage: UNK
     Route: 048
  10. OXYCODONE HYDROCHLORIDE. [Suspect]
     Active Substance: OXYCODONE HYDROCHLORIDE
     Indication: ANALGESIC THERAPY
     Dosage: UNK
     Route: 065
     Dates: end: 20041127
  11. HYDROCHLOROTHIAZIDE. [Concomitant]
     Active Substance: HYDROCHLOROTHIAZIDE
     Dosage: UNK
     Route: 048
  12. HYDROCHLOROTHIAZIDE, TRIAMTERENE [Concomitant]
     Active Substance: HYDROCHLOROTHIAZIDE\TRIAMTERENE
     Dosage: UNK
     Route: 065

REACTIONS (37)
  - Cutaneous lupus erythematosus [Fatal]
  - Metastases to peritoneum [Fatal]
  - Wound infection [Fatal]
  - Pneumonia [Fatal]
  - Performance status decreased [Fatal]
  - Hypophagia [Fatal]
  - Chronic obstructive pulmonary disease [Fatal]
  - Haemorrhage [Fatal]
  - Dyspepsia [Fatal]
  - Hypertension [Fatal]
  - Hypotension [Fatal]
  - Nausea [Fatal]
  - Hypokalaemia [Fatal]
  - Asthenia [Fatal]
  - Oesophageal ulcer [Fatal]
  - Metastatic gastric cancer [Fatal]
  - Oesophageal carcinoma [Fatal]
  - Metastases to liver [Fatal]
  - Urinary tract infection [Fatal]
  - Tooth loss [Fatal]
  - Pleural effusion [Fatal]
  - Gastrooesophageal reflux disease [Fatal]
  - Purulent discharge [Fatal]
  - Blood pressure decreased [Fatal]
  - Vomiting [Fatal]
  - Dysphagia [Fatal]
  - Splenic haematoma [Fatal]
  - Arthritis [Fatal]
  - Body height decreased [Fatal]
  - Metastases to thorax [Fatal]
  - Weight decreased [Fatal]
  - Pain [Fatal]
  - Drug hypersensitivity [Fatal]
  - Metastatic lymphoma [Fatal]
  - Lymphadenopathy [Fatal]
  - Wound secretion [Fatal]
  - Pericardial effusion [Fatal]

NARRATIVE: CASE EVENT DATE: 20040501
